FAERS Safety Report 11866337 (Version 1)
Quarter: 2015Q4

REPORT INFORMATION
  Report Type: Spontaneous
  Country: US (occurrence: US)
  Receive Date: 20151223
  Receipt Date: 20151223
  Transmission Date: 20160305
  Serious: No
  Sender: FDA-Public Use
  Company Number: US-009507513-1512USA011463

PATIENT
  Age: 76 Year
  Sex: Male

DRUGS (3)
  1. JANUVIA [Suspect]
     Active Substance: SITAGLIPTIN PHOSPHATE
     Dosage: 25 MG, QD
     Route: 048
  2. CHOLESTEROL [Concomitant]
     Active Substance: CHOLESTEROL
  3. HYDRALAZINE [Concomitant]
     Active Substance: HYDRALAZINE HYDROCHLORIDE

REACTIONS (3)
  - Renal impairment [Unknown]
  - Hypertension [Unknown]
  - Blood potassium increased [Unknown]
